FAERS Safety Report 6770388-5 (Version None)
Quarter: 2010Q2

REPORT INFORMATION
  Report Type: 
  Country: None (occurrence: None)
  Receive Date: 20100615
  Receipt Date: 20100604
  Transmission Date: 20101027
  Serious: Yes (Other)
  Sender: FDA-Public Use
  Company Number: FI-JNJFOC-20100601719

PATIENT
  Age: 7 Year
  Sex: Male

DRUGS (7)
  1. REMICADE [Suspect]
     Indication: CROHN'S DISEASE
     Route: 042
  2. REMICADE [Suspect]
     Route: 042
  3. REMICADE [Suspect]
     Route: 042
  4. SOLU-CORTEF [Concomitant]
     Indication: PREMEDICATION
  5. HEINIX [Concomitant]
     Indication: PREMEDICATION
  6. HYDROCORTISONE [Concomitant]
     Indication: PREMEDICATION
  7. PERFALGAN [Concomitant]
     Indication: PREMEDICATION

REACTIONS (3)
  - ANAPHYLACTIC REACTION [None]
  - BODY TEMPERATURE INCREASED [None]
  - INFUSION RELATED REACTION [None]
